FAERS Safety Report 24881667 (Version 1)
Quarter: 2025Q1

REPORT INFORMATION
  Report Type: Spontaneous
  Country: US (occurrence: US)
  Receive Date: 20250124
  Receipt Date: 20250124
  Transmission Date: 20250409
  Serious: Yes (Hospitalization)
  Sender: AMNEAL
  Company Number: US-AMNEAL PHARMACEUTICALS-2025-AMRX-00117

PATIENT
  Sex: Female

DRUGS (3)
  1. MIDODRINE HYDROCHLORIDE [Suspect]
     Active Substance: MIDODRINE HYDROCHLORIDE
     Indication: Product used for unknown indication
     Route: 065
  2. MEXILETINE [Suspect]
     Active Substance: MEXILETINE
     Indication: Product used for unknown indication
     Route: 065
  3. VYNDAMAX [Suspect]
     Active Substance: TAFAMIDIS
     Indication: Product used for unknown indication
     Dosage: 61 MG; 1 CAPSULES, DAILY
     Route: 048

REACTIONS (1)
  - Balance disorder [Unknown]
